FAERS Safety Report 18816352 (Version 1)
Quarter: 2021Q1

REPORT INFORMATION
  Report Type: Spontaneous
  Country: FR (occurrence: FR)
  Receive Date: 20210201
  Receipt Date: 20210201
  Transmission Date: 20210419
  Serious: Yes (Hospitalization, Other)
  Sender: FDA-Public Use
  Company Number: FR-GLAXOSMITHKLINE-FR2021018951

PATIENT
  Age: 17 Day
  Sex: Female
  Weight: 4 kg

DRUGS (1)
  1. ZOVIRAX [Suspect]
     Active Substance: ACYCLOVIR
     Indication: VARICELLA
     Dosage: 250 MG
     Route: 041
     Dates: start: 20210109, end: 20210109

REACTIONS (4)
  - Incorrect dose administered [Recovered/Resolved]
  - Skin necrosis [Recovered/Resolved with Sequelae]
  - Product preparation error [Recovered/Resolved]
  - Product administration error [Recovered/Resolved]

NARRATIVE: CASE EVENT DATE: 20210109
